FAERS Safety Report 17638308 (Version 1)
Quarter: 2020Q2

REPORT INFORMATION
  Report Type: Spontaneous
  Country: US (occurrence: US)
  Receive Date: 20200407
  Receipt Date: 20200407
  Transmission Date: 20200713
  Serious: No
  Sender: FDA-Public Use
  Company Number: US-CEDIPROF, INC.-2082426

PATIENT
  Age: 55 Year
  Sex: Female

DRUGS (3)
  1. VEGAN MULTI VITAMIN [Concomitant]
  2. LEVO-T [Suspect]
     Active Substance: LEVOTHYROXINE SODIUM
     Indication: PRODUCT USED FOR UNKNOWN INDICATION
  3. ESTRADIOL. [Concomitant]
     Active Substance: ESTRADIOL

REACTIONS (5)
  - Dizziness [Unknown]
  - Blood pressure diastolic increased [Unknown]
  - Confusional state [Unknown]
  - Blood pressure decreased [Unknown]
  - Flushing [Unknown]
